FAERS Safety Report 17785691 (Version 2)
Quarter: 2020Q3

REPORT INFORMATION
  Report Type: Spontaneous
  Country: DE (occurrence: DE)
  Receive Date: 20200513
  Receipt Date: 20200909
  Transmission Date: 20201102
  Serious: Yes (Hospitalization, Other)
  Sender: FDA-Public Use
  Company Number: NVSC2020DE118596

PATIENT
  Age: 71 Year
  Sex: Female
  Weight: 71.7 kg

DRUGS (15)
  1. PANTOPRAZOL CT [Concomitant]
     Indication: PRODUCT USED FOR UNKNOWN INDICATION
     Dosage: 1 DF, QD (20 MG) IN THE MORNING (TOTAL 100 ENTERIC COATED TABLETS)
     Route: 065
  2. AMLODIPIN [Concomitant]
     Active Substance: AMLODIPINE BESYLATE
     Indication: PRODUCT USED FOR UNKNOWN INDICATION
     Dosage: 5 MG, QD (IN THE EVENING, 100 TABLETS)
     Route: 065
  3. PANTOZOL [Concomitant]
     Active Substance: PANTOPRAZOLE SODIUM
     Indication: PRODUCT USED FOR UNKNOWN INDICATION
     Dosage: 1 DF, QD (20 MG) IN THE MORNING
     Route: 065
  4. SIMVAHEXAL [Concomitant]
     Active Substance: SIMVASTATIN
     Indication: PRODUCT USED FOR UNKNOWN INDICATION
     Dosage: 0.5 MG, QD (40 MG) IN EVENING
     Route: 065
     Dates: end: 201702
  5. SIMVAHEXAL [Concomitant]
     Active Substance: SIMVASTATIN
     Dosage: 1 DF, QD (30 MG) AT NIGHT
     Route: 065
     Dates: start: 201702
  6. METOHEXAL SUCC [Concomitant]
     Active Substance: METOPROLOL SUCCINATE
     Indication: PRODUCT USED FOR UNKNOWN INDICATION
     Dosage: 0.5 MG, (47.5 MG) BID IN MORNING AND EVENING (100 TABLETS)
     Route: 065
  7. VENTOLAIR [Concomitant]
     Active Substance: BECLOMETHASONE DIPROPIONATE
     Indication: LUNG DISORDER
     Dosage: 100 UG, BID (IN THE MORN AND EVEN, 200 PUFF, 2 UNITS)
     Route: 065
  8. ATORVASTATIN [Concomitant]
     Active Substance: ATORVASTATIN
     Indication: PRODUCT USED FOR UNKNOWN INDICATION
     Dosage: 20 MG, QD (IN THE EVENING, 100 TABLETS)
     Route: 065
  9. HERZASS ^RATIOPHARM^ [Concomitant]
     Active Substance: ASPIRIN
     Indication: PRODUCT USED FOR UNKNOWN INDICATION
     Dosage: 1 DF, QD (100 MG) IN MORNING (100 TABLETS)
     Route: 065
  10. NOVAMINSULFON LICHTENSTEIN [Concomitant]
     Active Substance: METAMIZOLE SODIUM
     Indication: ORTHOPAEDIC PROCEDURE
     Dosage: 500 MG, PRN (FILM COATED 50 TABLETS)
     Route: 065
  11. SALBUTAMOL [Concomitant]
     Active Substance: ALBUTEROL
     Indication: PRODUCT USED FOR UNKNOWN INDICATION
     Dosage: PRN, DOSING AEROSOL, 200 PUFFS, 1 UNIT
     Route: 065
  12. VALSARTAN. [Suspect]
     Active Substance: VALSARTAN
     Indication: HYPERTENSION
     Dosage: 0.5 DF, BID (160 MG) IN THE MORNING AND EVENING
     Route: 065
     Dates: start: 201410, end: 2018
  13. VITAMIN D3 [Concomitant]
     Active Substance: CHOLECALCIFEROL
     Indication: PRODUCT USED FOR UNKNOWN INDICATION
     Dosage: 1 DF, QD IN MORNING (100 TABLETS)
     Route: 065
  14. METOHEXAL SUCC [Concomitant]
     Active Substance: METOPROLOL SUCCINATE
     Dosage: 0.5 MG, (95 MG) BID IN MORNING AND EVENING (100 TABLETS)
     Route: 065
     Dates: start: 201812
  15. METOPROLOL. [Concomitant]
     Active Substance: METOPROLOL
     Indication: PRODUCT USED FOR UNKNOWN INDICATION
     Dosage: 0.5 DF, BID (0.5?0?0.5 INCREASED)
     Route: 065

REACTIONS (33)
  - Hypokalaemia [Unknown]
  - Pancreatic neoplasm [Unknown]
  - Atrioventricular block first degree [Unknown]
  - Hepatic cyst [Unknown]
  - Hiatus hernia [Unknown]
  - Vomiting [Recovered/Resolved]
  - Deafness neurosensory [Unknown]
  - Obesity [Unknown]
  - Body mass index abnormal [Unknown]
  - Chronic kidney disease [Unknown]
  - Haemangioma [Unknown]
  - Hyperuricaemia [Unknown]
  - Glucose tolerance impaired [Unknown]
  - Restlessness [Recovered/Resolved]
  - Hyperlipidaemia [Unknown]
  - Mediastinal disorder [Unknown]
  - Arrhythmia [Unknown]
  - Osteochondrosis [Unknown]
  - Chronic gastritis [Unknown]
  - Haemangioma of bone [Unknown]
  - Atrial fibrillation [Unknown]
  - Intervertebral disc disorder [Unknown]
  - Uterine leiomyoma [Unknown]
  - Renal cyst [Unknown]
  - Diverticulum intestinal [Unknown]
  - Asthma [Unknown]
  - Blood glucose abnormal [Unknown]
  - Malaise [Recovered/Resolved]
  - Osteoarthritis [Unknown]
  - Coronary artery disease [Unknown]
  - Varicose vein [Unknown]
  - Hypercholesterolaemia [Unknown]
  - Pleural effusion [Unknown]

NARRATIVE: CASE EVENT DATE: 201812
